FAERS Safety Report 16491057 (Version 1)
Quarter: 2019Q3

REPORT INFORMATION
  Report Type: Spontaneous
  Country: US (occurrence: US)
  Receive Date: 20190627
  Receipt Date: 20190627
  Transmission Date: 20191004
  Serious: Yes (Other)
  Sender: FDA-Public Use
  Company Number: None

PATIENT
  Age: 31 Year
  Sex: Female

DRUGS (3)
  1. SOMATULINE [Suspect]
     Active Substance: LANREOTIDE ACETATE
     Indication: ACROMEGALY
     Dosage: ?          OTHER FREQUENCY:EVERY 4 WEEKS;?
     Route: 058
     Dates: start: 20190508
  2. OCTREOTIDE 100 MCG/ML [Concomitant]
  3. SOMATULINE [Suspect]
     Active Substance: LANREOTIDE ACETATE
     Indication: SOTOS^ SYNDROME
     Dosage: ?          OTHER FREQUENCY:EVERY 4 WEEKS;?
     Route: 058
     Dates: start: 20190508

REACTIONS (11)
  - Constipation [None]
  - Headache [None]
  - Dizziness [None]
  - Vomiting [None]
  - Swelling [None]
  - Fatigue [None]
  - Nausea [None]
  - Dyspnoea [None]
  - Rash [None]
  - Diarrhoea [None]
  - Pain [None]
